FAERS Safety Report 19728759 (Version 2)
Quarter: 2021Q3

REPORT INFORMATION
  Report Type: Report from Study
  Country: US (occurrence: US)
  Receive Date: 20210820
  Receipt Date: 20210922
  Transmission Date: 20211014
  Serious: Yes (Other)
  Sender: FDA-Public Use
  Company Number: US-INSMED, INC.-2021-08858-US

PATIENT
  Sex: Male

DRUGS (4)
  1. ARIKAYCE [Suspect]
     Active Substance: AMIKACIN
     Indication: CHRONIC OBSTRUCTIVE PULMONARY DISEASE
  2. ARIKAYCE [Suspect]
     Active Substance: AMIKACIN
     Indication: MYCOBACTERIUM AVIUM COMPLEX INFECTION
     Dosage: 590 MILLIGRAM, QD
     Route: 055
     Dates: start: 202106, end: 20210729
  3. ALBUTEROL HFA [Concomitant]
     Active Substance: ALBUTEROL SULFATE
     Indication: PRODUCT USED FOR UNKNOWN INDICATION
  4. ARIKAYCE [Suspect]
     Active Substance: AMIKACIN
     Indication: MYCOBACTERIUM ABSCESSUS INFECTION
     Dosage: 590 MILIGRAM, QD
     Route: 055
     Dates: start: 20210802, end: 202108

REACTIONS (8)
  - Fatigue [Unknown]
  - Cough [Not Recovered/Not Resolved]
  - Oxygen saturation decreased [Unknown]
  - Nausea [Unknown]
  - Product dose omission issue [Unknown]
  - Dysphonia [Recovered/Resolved]
  - Unevaluable event [Unknown]
  - Dyspnoea [Unknown]

NARRATIVE: CASE EVENT DATE: 2021
